FAERS Safety Report 9632031 (Version 1)
Quarter: 2013Q4

REPORT INFORMATION
  Report Type: Spontaneous
  Country: US (occurrence: US)
  Receive Date: 20131018
  Receipt Date: 20131018
  Transmission Date: 20140711
  Serious: Yes (Hospitalization)
  Sender: FDA-Public Use
  Company Number: US-SA-2013SA103137

PATIENT
  Age: 81 Year
  Sex: Male
  Weight: 77.11 kg

DRUGS (1)
  1. ELIGARD [Suspect]
     Indication: PROSTATE CANCER
     Dosage: TAKEN FROM:~3 YEARS AGO
     Route: 065

REACTIONS (8)
  - Pyrexia [Recovered/Resolved]
  - Urinary tract infection [Unknown]
  - Hypoglycaemia [Unknown]
  - Chills [Unknown]
  - Hot flush [Recovered/Resolved]
  - Tremor [Unknown]
  - Asthenia [Unknown]
  - Vomiting [Recovered/Resolved]
